FAERS Safety Report 15532957 (Version 2)
Quarter: 2020Q3

REPORT INFORMATION
  Report Type: Spontaneous
  Country: LV (occurrence: LV)
  Receive Date: 20181019
  Receipt Date: 20181108
  Transmission Date: 20201105
  Serious: Yes (Hospitalization, Other)
  Sender: FDA-Public Use
  Company Number: LV-MYLANLABS-2018M1078186

PATIENT
  Age: 56 Year
  Sex: Male

DRUGS (5)
  1. PREDNISOLONE. [Suspect]
     Active Substance: PREDNISOLONE
     Indication: RHEUMATOID ARTHRITIS
     Dosage: 5 MG, QW
     Route: 048
  2. ETORICOXIB. [Suspect]
     Active Substance: ETORICOXIB
     Indication: RHEUMATOID ARTHRITIS
     Dosage: 90 MG, UNK
     Route: 065
  3. ENBREL [Suspect]
     Active Substance: ETANERCEPT
     Indication: RHEUMATOID ARTHRITIS
     Dosage: 50 MG, QW
     Route: 058
     Dates: start: 201703
  4. PREDNISOLONE. [Suspect]
     Active Substance: PREDNISOLONE
     Dosage: 5 MG, QD
     Route: 048
  5. METHOTREXATE. [Suspect]
     Active Substance: METHOTREXATE
     Indication: RHEUMATOID ARTHRITIS
     Dosage: 20 MG, QW
     Route: 048

REACTIONS (6)
  - Rheumatoid arthritis [Unknown]
  - Fungal infection [Unknown]
  - Metastasis [Unknown]
  - Pulmonary tuberculosis [Unknown]
  - Rheumatoid nodule [Unknown]
  - Lung disorder [Unknown]

NARRATIVE: CASE EVENT DATE: 201708
